FAERS Safety Report 4524721-5 (Version None)
Quarter: 2004Q4

REPORT INFORMATION
  Report Type: 
  Country: None (occurrence: None)
  Receive Date: 20041211
  Receipt Date: 20041202
  Transmission Date: 20050328
  Serious: Yes (Other)
  Sender: FDA-Public Use
  Company Number: US-MERCK-0412USA00425

PATIENT
  Age: 64 Year
  Sex: Female

DRUGS (1)
  1. VIOXX [Suspect]
     Route: 048
     Dates: end: 20040801

REACTIONS (2)
  - CORONARY ARTERY OCCLUSION [None]
  - CORONARY ARTERY RESTENOSIS [None]
